FAERS Safety Report 6073785-9 (Version None)
Quarter: 2009Q1

REPORT INFORMATION
  Report Type: 
  Country: None (occurrence: None)
  Receive Date: 20090209
  Receipt Date: 20090209
  Transmission Date: 20090719
  Serious: Yes (Hospitalization)
  Sender: FDA-Public Use
  Company Number: None

PATIENT
  Age: 61 Year
  Sex: Male
  Weight: 138.2 kg

DRUGS (9)
  1. GLIMEPIRIDE [Suspect]
     Indication: TYPE 2 DIABETES MELLITUS
     Dosage: TITRATED DOSE BETWEEN 1 MG AND 6 MG ORAL
     Route: 048
     Dates: start: 20080320
  2. METFORMIN HCL [Concomitant]
  3. SIMVASTATIN [Concomitant]
  4. FUROSEMIDE [Concomitant]
  5. AMLODIPINE [Concomitant]
  6. METOPROLOL [Concomitant]
  7. ACETYLSALICYLIC ACID SRT [Concomitant]
  8. SPIRONOLACTONE [Concomitant]
  9. BENDROFLUMETHIAZIDE [Concomitant]

REACTIONS (1)
  - CHEST DISCOMFORT [None]
